FAERS Safety Report 22381313 (Version 1)
Quarter: 2023Q2

REPORT INFORMATION
  Report Type: Spontaneous
  Country: ES (occurrence: ES)
  Receive Date: 20230530
  Receipt Date: 20230530
  Transmission Date: 20230722
  Serious: Yes (Other)
  Sender: FDA-Public Use
  Company Number: ES-CELLTRION INC.-2023ES006837

PATIENT

DRUGS (8)
  1. ADALIMUMAB [Suspect]
     Active Substance: ADALIMUMAB
     Indication: Birdshot chorioretinopathy
     Dosage: 40 MILLIGRAM MONTHLY
     Route: 058
  2. ADALIMUMAB [Suspect]
     Active Substance: ADALIMUMAB
     Indication: Uveitis
     Dosage: 40 MILLIGRAM, BIWEEKLY
     Route: 058
  3. GOLIMUMAB [Suspect]
     Active Substance: GOLIMUMAB
     Indication: Uveitis
     Dosage: 50 MILLIGRAM MONTHLY
  4. GOLIMUMAB [Suspect]
     Active Substance: GOLIMUMAB
     Indication: Birdshot chorioretinopathy
  5. MYCOPHENOLATE MOFETIL [Concomitant]
     Active Substance: MYCOPHENOLATE MOFETIL
     Indication: Uveitis
     Dosage: 2 GRAM, QD
  6. MYCOPHENOLATE MOFETIL [Concomitant]
     Active Substance: MYCOPHENOLATE MOFETIL
     Indication: Birdshot chorioretinopathy
  7. TOCILIZUMAB [Concomitant]
     Active Substance: TOCILIZUMAB
     Indication: Uveitis
     Dosage: 162 MILLIGRAM, QW
  8. TOCILIZUMAB [Concomitant]
     Active Substance: TOCILIZUMAB
     Indication: Birdshot chorioretinopathy

REACTIONS (5)
  - Lupus-like syndrome [Recovered/Resolved]
  - Antinuclear antibody increased [Unknown]
  - Double stranded DNA antibody positive [Unknown]
  - Product use in unapproved indication [Unknown]
  - Off label use [Unknown]
